FAERS Safety Report 18354463 (Version 1)
Quarter: 2020Q4

REPORT INFORMATION
  Report Type: Spontaneous
  Country: US (occurrence: US)
  Receive Date: 20201006
  Receipt Date: 20201006
  Transmission Date: 20210114
  Serious: Yes (Disabling)
  Sender: FDA-Public Use
  Company Number: None

PATIENT
  Age: 57 Year
  Sex: Female
  Weight: 54 kg

DRUGS (4)
  1. DAILY ASPIRIN [Concomitant]
  2. MELATONIN [Concomitant]
     Active Substance: MELATONIN
  3. KLONOPIN [Suspect]
     Active Substance: CLONAZEPAM
     Indication: ANXIETY
     Dosage: ?          QUANTITY:15 TABLET(S);OTHER FREQUENCY:MONTHLY;?
     Route: 048
  4. VITAMIN C [Concomitant]
     Active Substance: ASCORBIC ACID

REACTIONS (6)
  - Quality of life decreased [None]
  - Withdrawal syndrome [None]
  - Brain injury [None]
  - Liver disorder [None]
  - Tooth loss [None]
  - Bruxism [None]

NARRATIVE: CASE EVENT DATE: 20200401
